FAERS Safety Report 6385931-8 (Version None)
Quarter: 2009Q4

REPORT INFORMATION
  Report Type: 
  Country: None (occurrence: None)
  Receive Date: 20091002
  Receipt Date: 20090407
  Transmission Date: 20100525
  Serious: No
  Sender: FDA-Public Use
  Company Number: US-ASTRAZENECA-2009UW05606

PATIENT
  Age: 63 Year
  Sex: Female
  Weight: 67.1 kg

DRUGS (2)
  1. ARIMIDEX [Suspect]
     Indication: BREAST CANCER
     Route: 048
     Dates: start: 20090129
  2. SYNTHROID [Concomitant]

REACTIONS (9)
  - AMNESIA [None]
  - DECREASED APPETITE [None]
  - DIZZINESS [None]
  - DYSARTHRIA [None]
  - DYSGEUSIA [None]
  - HOT FLUSH [None]
  - MUCOSAL DRYNESS [None]
  - PARAESTHESIA [None]
  - PERIPHERAL COLDNESS [None]
